FAERS Safety Report 25647133 (Version 2)
Quarter: 2025Q4

REPORT INFORMATION
  Report Type: Report from Study
  Country: US (occurrence: US)
  Receive Date: 20250806
  Receipt Date: 20251006
  Transmission Date: 20260118
  Serious: Yes (Hospitalization, Other)
  Sender: NOVARTIS
  Company Number: US-002147023-NVSC2025US072871

PATIENT
  Sex: Female

DRUGS (1)
  1. KESIMPTA [Suspect]
     Active Substance: OFATUMUMAB
     Indication: Multiple sclerosis
     Dosage: 20 MG, OTHER (ONCE A WEEK FOR 3 WEEKS, SKIP WEEK 4, WEEK 5 START MONTHLY)
     Route: 058
     Dates: start: 20250425

REACTIONS (6)
  - Pneumonia [Unknown]
  - Nephrolithiasis [Unknown]
  - Cholelithiasis [Unknown]
  - White blood cell count increased [Unknown]
  - Dizziness [Recovered/Resolved]
  - Product distribution issue [Unknown]
